FAERS Safety Report 8452340-7 (Version None)
Quarter: 2012Q2

REPORT INFORMATION
  Report Type: 
  Country: None (occurrence: None)
  Receive Date: 20120620
  Receipt Date: 20120611
  Transmission Date: 20120825
  Serious: Yes (Hospitalization)
  Sender: FDA-Public Use
  Company Number: NO-ASTRAZENECA-2012SE39148

PATIENT
  Age: 60 Year
  Sex: Female

DRUGS (15)
  1. SINEMET [Concomitant]
     Indication: PRODUCT USED FOR UNKNOWN INDICATION
  2. IMODIUM [Concomitant]
     Indication: PRODUCT USED FOR UNKNOWN INDICATION
  3. DIAMOX [Concomitant]
     Indication: PRODUCT USED FOR UNKNOWN INDICATION
  4. EXELON [Concomitant]
     Indication: PRODUCT USED FOR UNKNOWN INDICATION
     Route: 050
  5. CALCIUM [Concomitant]
     Indication: PRODUCT USED FOR UNKNOWN INDICATION
  6. MADOPAR [Concomitant]
     Indication: PRODUCT USED FOR UNKNOWN INDICATION
  7. OXAZEPAM [Concomitant]
     Indication: PRODUCT USED FOR UNKNOWN INDICATION
  8. PILOKARPIN [Concomitant]
     Indication: PRODUCT USED FOR UNKNOWN INDICATION
  9. LEVOTHYROXINE SODIUM [Concomitant]
     Indication: PRODUCT USED FOR UNKNOWN INDICATION
  10. DEXAMETHASONE [Concomitant]
     Indication: PRODUCT USED FOR UNKNOWN INDICATION
  11. SEROQUEL [Suspect]
     Indication: HALLUCINATION
     Route: 048
     Dates: start: 20110101, end: 20110101
  12. XALATAN [Concomitant]
     Indication: PRODUCT USED FOR UNKNOWN INDICATION
  13. HEMINEVRIN [Concomitant]
     Indication: PRODUCT USED FOR UNKNOWN INDICATION
  14. DUODOPA [Suspect]
     Indication: PRODUCT USED FOR UNKNOWN INDICATION
     Route: 065
     Dates: start: 20080101, end: 20120201
  15. CLOZAPINE [Concomitant]
     Indication: HALLUCINATION

REACTIONS (7)
  - INTENTIONAL DRUG MISUSE [None]
  - HALLUCINATION [None]
  - WEIGHT INCREASED [None]
  - IMPAIRED SELF-CARE [None]
  - DELUSION [None]
  - PSYCHOTIC DISORDER [None]
  - DEMENTIA [None]
